FAERS Safety Report 5444025-6 (Version None)
Quarter: 2007Q3

REPORT INFORMATION
  Report Type: 
  Country: None (occurrence: None)
  Receive Date: 20070905
  Receipt Date: 20070822
  Transmission Date: 20080115
  Serious: Yes (Hospitalization)
  Sender: FDA-Public Use
  Company Number: US-GENENTECH-246514

PATIENT
  Sex: Male

DRUGS (1)
  1. XOLAIR [Suspect]
     Indication: ASTHMA
     Dosage: 375 MG, UNK
     Route: 058
     Dates: start: 20070801

REACTIONS (2)
  - ASTHMA [None]
  - CHRONIC OBSTRUCTIVE PULMONARY DISEASE [None]
